FAERS Safety Report 6793291-3 (Version None)
Quarter: 2010Q2

REPORT INFORMATION
  Report Type: 
  Country: None (occurrence: None)
  Receive Date: 20100624
  Receipt Date: 20091116
  Transmission Date: 20101027
  Serious: Yes (Other)
  Sender: FDA-Public Use
  Company Number: US-MYLANLABS-2009S1018781

PATIENT
  Age: 51 Year
  Sex: Male
  Weight: 87.09 kg

DRUGS (7)
  1. CLOZAPINE [Suspect]
     Indication: SCHIZOPHRENIA, PARANOID TYPE
     Route: 048
     Dates: start: 20091001
  2. CLOZAPINE [Suspect]
     Indication: SCHIZOAFFECTIVE DISORDER
     Route: 048
     Dates: start: 20091001
  3. CLOZAPINE [Suspect]
     Route: 048
  4. CLOZAPINE [Suspect]
     Route: 048
  5. CLOZAPINE [Suspect]
     Route: 048
     Dates: end: 20091022
  6. CLOZAPINE [Suspect]
     Route: 048
     Dates: end: 20091022
  7. ZYPREXA [Concomitant]

REACTIONS (1)
  - GRANULOCYTOPENIA [None]
